FAERS Safety Report 18304724 (Version 3)
Quarter: 2020Q4

REPORT INFORMATION
  Report Type: Report from Study
  Country: US (occurrence: US)
  Receive Date: 20200923
  Receipt Date: 20201022
  Transmission Date: 20210113
  Serious: No
  Sender: FDA-Public Use
  Company Number: NVSC2020US259567

PATIENT

DRUGS (1)
  1. ENTRESTO [Suspect]
     Active Substance: SACUBITRIL\VALSARTAN
     Indication: CARDIAC FAILURE CONGESTIVE
     Dosage: 24 MG, BID
     Route: 048
     Dates: start: 202003

REACTIONS (3)
  - Nasal congestion [Unknown]
  - Ulcer [Recovered/Resolved]
  - Dyspnoea [Not Recovered/Not Resolved]
